FAERS Safety Report 9726128 (Version 1)
Quarter: 2013Q4

REPORT INFORMATION
  Report Type: Spontaneous
  Country: DK (occurrence: DK)
  Receive Date: 20131203
  Receipt Date: 20131203
  Transmission Date: 20140711
  Serious: Yes (Hospitalization)
  Sender: FDA-Public Use
  Company Number: DK-B.I. PHARMACEUTICALS,INC./RIDGEFIELD-2013-BI-39261DB

PATIENT
  Age: 67 Year
  Sex: Female

DRUGS (19)
  1. TRAJENTA [Suspect]
     Indication: TYPE 2 DIABETES MELLITUS
     Dosage: 5 MG
     Route: 048
     Dates: start: 20130524, end: 20131116
  2. SENDOXAN [Concomitant]
     Indication: SCLERODERMA
     Dates: start: 20130604, end: 20130604
  3. SENDOXAN [Concomitant]
     Dates: start: 20130610, end: 20130610
  4. SENDOXAN [Concomitant]
     Dates: start: 20130806, end: 20130806
  5. SILDENAFIL [Concomitant]
     Indication: PULMONARY HYPERTENSION
     Route: 048
     Dates: start: 20130610
  6. FURIX [Concomitant]
     Indication: DIURETIC THERAPY
  7. KALEORID [Concomitant]
     Indication: ELECTROLYTE SUBSTITUTION THERAPY
     Route: 048
  8. ENACODAN [Concomitant]
     Indication: HYPERTENSION
     Route: 048
     Dates: end: 20130608
  9. EZETROL [Concomitant]
     Indication: HYPERCHOLESTEROLAEMIA
     Dosage: 10 MG
     Route: 048
  10. SIMVASTATIN [Concomitant]
     Indication: HYPERCHOLESTEROLAEMIA
     Route: 048
  11. HJERTEMAGNYL [Concomitant]
     Indication: ATRIAL FIBRILLATION
     Route: 048
  12. AMARYL [Concomitant]
     Indication: TYPE 2 DIABETES MELLITUS
  13. LANTUS SOLO STAR [Concomitant]
     Indication: DIABETES MELLITUS
     Route: 058
  14. NOVORAPID FLEXPEN [Concomitant]
     Indication: DIABETES MELLITUS
     Route: 058
  15. PREDNISOLON [Concomitant]
     Indication: SCLERODERMA
     Route: 048
  16. SYMBICORT TURBOHALER [Concomitant]
     Indication: OBSTRUCTIVE AIRWAYS DISORDER
     Route: 048
  17. BRICANYL TURBOHALER [Concomitant]
     Indication: BRONCHOSPASM
     Route: 048
  18. VAGIFEM [Concomitant]
     Indication: MUCOUS MEMBRANE DISORDER
     Route: 067
  19. UNIKALK SENIOR/SILVER [Concomitant]
     Indication: MINERAL SUPPLEMENTATION
     Route: 048

REACTIONS (5)
  - Cardiac failure [Not Recovered/Not Resolved]
  - Atrial fibrillation [Not Recovered/Not Resolved]
  - Cardiac arrest [Not Recovered/Not Resolved]
  - Oedema [Not Recovered/Not Resolved]
  - Disease progression [Unknown]
